FAERS Safety Report 8367479-4 (Version None)
Quarter: 2012Q2

REPORT INFORMATION
  Report Type: 
  Country: None (occurrence: None)
  Receive Date: 20120517
  Receipt Date: 20120308
  Transmission Date: 20120825
  Serious: No
  Sender: FDA-Public Use
  Company Number: US-GLAXOSMITHKLINE-A0969153A

PATIENT
  Age: 16 Year
  Sex: Male

DRUGS (8)
  1. LOVAZA [Concomitant]
  2. PENICILLIN [Concomitant]
  3. MULTI-VITAMIN [Concomitant]
  4. VOTRIENT [Suspect]
     Indication: DESMOPLASTIC SMALL ROUND CELL TUMOUR
     Dosage: 600MG PER DAY
     Route: 048
     Dates: start: 20111101
  5. VITAMIN B-12 [Concomitant]
  6. VITAMIN D [Concomitant]
  7. BACTRIM [Concomitant]
  8. OXYCODONE HCL [Concomitant]
     Indication: PAIN

REACTIONS (2)
  - DIARRHOEA [None]
  - NAUSEA [None]
